FAERS Safety Report 6773575-5 (Version None)
Quarter: 2010Q2

REPORT INFORMATION
  Report Type: 
  Country: None (occurrence: None)
  Receive Date: 20100611
  Receipt Date: 20100604
  Transmission Date: 20101027
  Serious: Yes (Hospitalization, Other)
  Sender: FDA-Public Use
  Company Number: 2010SP031657

PATIENT
  Sex: Male

DRUGS (1)
  1. PEG-INTRON [Suspect]
     Indication: HEPATITIS C
     Dosage: ; SC
     Route: 058

REACTIONS (15)
  - ASTHENIA [None]
  - CONDITION AGGRAVATED [None]
  - EATING DISORDER [None]
  - ESCHERICHIA INFECTION [None]
  - FATIGUE [None]
  - HAEMODIALYSIS [None]
  - HEADACHE [None]
  - JAUNDICE [None]
  - LETHARGY [None]
  - LOCALISED INTRAABDOMINAL FLUID COLLECTION [None]
  - MOVEMENT DISORDER [None]
  - NAUSEA [None]
  - PYREXIA [None]
  - RENAL FAILURE [None]
  - VASCULITIS [None]
